FAERS Safety Report 12220855 (Version 2)
Quarter: 2016Q2

REPORT INFORMATION
  Report Type: Spontaneous
  Country: US (occurrence: US)
  Receive Date: 20160330
  Receipt Date: 20160531
  Transmission Date: 20160815
  Serious: No
  Sender: FDA-Public Use
  Company Number: US-PFIZER INC-2016136467

PATIENT
  Age: 56 Year
  Sex: Male
  Weight: 82 kg

DRUGS (1)
  1. HYDROCORTISONE. [Suspect]
     Active Substance: HYDROCORTISONE
     Indication: ADRENAL DISORDER
     Dosage: 10 MG TABLETS, TWO IN MORNING, ONE IN AFTERNOON THREE DAYS A WEEK, TWO IN AFTERNOON FOUR DAYS A WEEK

REACTIONS (1)
  - Calcium deficiency [Unknown]
